FAERS Safety Report 19442011 (Version 1)
Quarter: 2021Q2

REPORT INFORMATION
  Report Type: Spontaneous
  Country: JP (occurrence: JP)
  Receive Date: 20210621
  Receipt Date: 20210621
  Transmission Date: 20210717
  Serious: Yes (Other)
  Sender: FDA-Public Use
  Company Number: JP-ELI_LILLY_AND_COMPANY-JP202106004897

PATIENT
  Age: 69 Year
  Sex: Male

DRUGS (3)
  1. CISPLATIN. [Suspect]
     Active Substance: CISPLATIN
     Indication: LUNG SQUAMOUS CELL CARCINOMA STAGE IV
     Dosage: 75 MG/M2, OTHER
     Route: 065
  2. NECITUMUMAB [Suspect]
     Active Substance: NECITUMUMAB
     Indication: LUNG SQUAMOUS CELL CARCINOMA STAGE IV
     Dosage: 800 MG, OTHER
     Route: 041
  3. GEMCITABINE HYDROCHLORIDE. [Suspect]
     Active Substance: GEMCITABINE HYDROCHLORIDE
     Indication: LUNG SQUAMOUS CELL CARCINOMA STAGE IV
     Dosage: 1250 MG/M2, OTHER
     Route: 041

REACTIONS (5)
  - Constipation [Unknown]
  - Decreased appetite [Unknown]
  - Neutropenia [Unknown]
  - Hyponatraemia [Unknown]
  - Dermatitis acneiform [Recovering/Resolving]
